FAERS Safety Report 8789182 (Version 1)
Quarter: 2012Q4

REPORT INFORMATION
  Report Type: Spontaneous
  Country: US (occurrence: None)
  Receive Date: 20120904
  Receipt Date: 20120904
  Transmission Date: 20130627
  Serious: Yes (Hospitalization)
  Sender: FDA-Public Use
  Company Number: 110628-000252

PATIENT
  Sex: Female

DRUGS (5)
  1. PROACTIV [Suspect]
     Indication: ACNE
     Dosage: daily dermal
     Dates: start: 20110421, end: 20110428
  2. REPAIRING TREATMENT [Suspect]
     Indication: ACNE
     Dosage: daily dermal
     Dates: start: 20110421, end: 20110428
  3. REFINING MASK [Suspect]
     Indication: ACNE
     Dosage: daily dermal
     Dates: start: 20110421, end: 20120428
  4. DEEP CLEANSING WASH [Suspect]
     Indication: ACNE
     Dates: start: 20110421, end: 20110428
  5. VITA CLEAR [Concomitant]

REACTIONS (3)
  - Skin burning sensation [None]
  - Furuncle [None]
  - Staphylococcus test positive [None]
